FAERS Safety Report 9265319 (Version 1)
Quarter: 2013Q2

REPORT INFORMATION
  Report Type: Spontaneous
  Country: US (occurrence: US)
  Receive Date: 20130501
  Receipt Date: 20130501
  Transmission Date: 20140414
  Serious: Yes (Death, Other)
  Sender: FDA-Public Use
  Company Number: US-PFIZER INC-2013132706

PATIENT
  Sex: Female

DRUGS (1)
  1. AZITHROMYCIN [Suspect]
     Indication: RESPIRATORY DISORDER
     Dosage: 250 MG, UNK

REACTIONS (2)
  - Death [Fatal]
  - Contraindication to medical treatment [Unknown]
